FAERS Safety Report 5316439-6 (Version None)
Quarter: 2007Q2

REPORT INFORMATION
  Report Type: 
  Country: None (occurrence: None)
  Receive Date: 20070504
  Receipt Date: 20070426
  Transmission Date: 20071010
  Serious: Yes (Hospitalization, Other)
  Sender: FDA-Public Use
  Company Number: PHEH2007US05383

PATIENT
  Age: 56 Year
  Sex: Female

DRUGS (5)
  1. ZELNORM [Suspect]
     Dosage: 6 MG, BID
     Dates: start: 20061001, end: 20061113
  2. VICODIN [Concomitant]
     Indication: CLUSTER HEADACHE
     Dates: start: 19900101
  3. AMBIEN [Concomitant]
     Indication: INSOMNIA
     Dates: start: 20020101
  4. ASPIRIN [Concomitant]
  5. LIPITOR [Concomitant]
     Indication: HYPERCHOLESTEROLAEMIA
     Dates: start: 20061101

REACTIONS (4)
  - CHEST PAIN [None]
  - DYSPNOEA [None]
  - MYOCARDIAL INFARCTION [None]
  - VASCULAR BYPASS GRAFT [None]
